FAERS Safety Report 8586614-6 (Version None)
Quarter: 2012Q3

REPORT INFORMATION
  Report Type: 
  Country: None (occurrence: None)
  Receive Date: 20120810
  Receipt Date: 20120801
  Transmission Date: 20120928
  Serious: Yes (Other)
  Sender: FDA-Public Use
  Company Number: US-JNJFOC-20120613867

PATIENT
  Sex: Male
  Weight: 79.38 kg

DRUGS (12)
  1. AMBIEN CR [Suspect]
     Indication: SLEEP DISORDER
     Route: 048
     Dates: start: 20100101, end: 20120701
  2. BUSPAR [Concomitant]
     Indication: ANXIETY
     Route: 048
     Dates: start: 20120625
  3. PROPRANOLOL [Concomitant]
     Indication: TREMOR
     Route: 048
     Dates: start: 20070101
  4. KLOR-CON [Concomitant]
     Indication: BLOOD POTASSIUM DECREASED
     Route: 048
     Dates: start: 20120616
  5. FISH OIL [Concomitant]
     Indication: BLOOD CHOLESTEROL INCREASED
     Route: 048
     Dates: start: 20080101
  6. CLONIDINE [Concomitant]
     Indication: HYPERTENSION
     Route: 048
     Dates: start: 20120601
  7. FENTANYL-100 [Suspect]
     Indication: INTERVERTEBRAL DISC DEGENERATION
     Dosage: NDC 0781-7244-55
     Route: 062
     Dates: start: 20120706
  8. PERCOCET [Concomitant]
     Indication: TRIGEMINAL NEURALGIA
     Dosage: 10-325 MG THREE TIMES A DAY.
     Route: 048
     Dates: start: 20070101, end: 20120729
  9. INDERAL [Concomitant]
     Indication: HYPERTENSION
     Route: 048
     Dates: start: 20120101
  10. PROTONIX [Concomitant]
     Indication: GASTROOESOPHAGEAL REFLUX DISEASE
     Route: 048
     Dates: start: 20120401
  11. NEXIUM [Concomitant]
     Indication: GASTROOESOPHAGEAL REFLUX DISEASE
     Route: 048
     Dates: start: 20120101
  12. FENTANYL-100 [Suspect]
     Dosage: 2 50 MCG PATCH (NDC-0781-7221-55)
     Route: 062
     Dates: start: 20120119

REACTIONS (17)
  - ASTHENIA [None]
  - DIARRHOEA [None]
  - HEADACHE [None]
  - CHEST PAIN [None]
  - DIZZINESS [None]
  - PALPITATIONS [None]
  - NAUSEA [None]
  - HYPERSOMNIA [None]
  - ABNORMAL LOSS OF WEIGHT [None]
  - WITHDRAWAL SYNDROME [None]
  - MIDDLE INSOMNIA [None]
  - HYPERTENSION [None]
  - ABDOMINAL PAIN [None]
  - WEIGHT INCREASED [None]
  - DECREASED APPETITE [None]
  - OESOPHAGEAL DISORDER [None]
  - BREAKTHROUGH PAIN [None]
